FAERS Safety Report 11854260 (Version 2)
Quarter: 2015Q4

REPORT INFORMATION
  Report Type: Report from Study
  Country: US (occurrence: US)
  Receive Date: 20151220
  Receipt Date: 20151229
  Transmission Date: 20160305
  Serious: Yes (Hospitalization)
  Sender: FDA-Public Use
  Company Number: US-BIOGEN-2015BI00161060

PATIENT
  Age: 27 Year
  Sex: Female

DRUGS (1)
  1. TECFIDERA [Suspect]
     Active Substance: DIMETHYL FUMARATE
     Indication: MULTIPLE SCLEROSIS
     Route: 048
     Dates: start: 20151118

REACTIONS (3)
  - Urinary tract infection [Recovered/Resolved]
  - Fluid intake reduced [Unknown]
  - Feeding disorder [Unknown]

NARRATIVE: CASE EVENT DATE: 20151128
